FAERS Safety Report 15751134 (Version 1)
Quarter: 2018Q4

REPORT INFORMATION
  Report Type: Spontaneous
  Country: US (occurrence: US)
  Receive Date: 20181221
  Receipt Date: 20181221
  Transmission Date: 20190205
  Serious: No
  Sender: FDA-Public Use
  Company Number: US-THERAPEUTICSMD-2018TMD00175

PATIENT
  Age: 48 Year
  Sex: Female
  Weight: 114.29 kg

DRUGS (3)
  1. IMVEXXY [Suspect]
     Active Substance: ESTRADIOL
     Dosage: 10 ?G, 2X/WEEK RIGHT BEFORE BED
     Route: 067
     Dates: start: 201809, end: 201809
  2. LISINOPRIL. [Concomitant]
     Active Substance: LISINOPRIL
     Dosage: 10 MG, 1X/DAY
  3. IMVEXXY [Suspect]
     Active Substance: ESTRADIOL
     Indication: DYSPAREUNIA
     Dosage: 10 ?G, 1X/DAY RIGHT BEFORE BED
     Route: 067
     Dates: start: 201808, end: 201809

REACTIONS (3)
  - Vomiting [Recovering/Resolving]
  - Blood pressure increased [Recovering/Resolving]
  - Cluster headache [Recovering/Resolving]

NARRATIVE: CASE EVENT DATE: 2018
